FAERS Safety Report 19922716 (Version 5)
Quarter: 2022Q2

REPORT INFORMATION
  Report Type: Spontaneous
  Country: US (occurrence: US)
  Receive Date: 20211005
  Receipt Date: 20220624
  Transmission Date: 20220721
  Serious: No
  Sender: FDA-Public Use
  Company Number: US-AVEO ONCOLOGY-2021-AVEO-US003418

PATIENT

DRUGS (29)
  1. FOTIVDA [Suspect]
     Active Substance: TIVOZANIB HYDROCHLORIDE
     Indication: Renal cell carcinoma
     Dosage: 1.34 MG, DAILY 21 DAYS ON 7 DAYS OFF
     Route: 048
     Dates: start: 20210610
  2. ABIRATERONE ACETATE [Concomitant]
     Active Substance: ABIRATERONE ACETATE
  3. ADVIL DUAL ACTION WITH ACETAMINOPHEN [Concomitant]
     Active Substance: ACETAMINOPHEN\IBUPROFEN
  4. CIALIS [Concomitant]
     Active Substance: TADALAFIL
  5. FIRMAGON [Concomitant]
     Active Substance: DEGARELIX ACETATE
  6. GARLIC OIL [Concomitant]
     Active Substance: GARLIC OIL
  7. GINGER [Concomitant]
     Active Substance: GINGER
  8. Grapeseed extract [Concomitant]
  9. LEUKINE [Concomitant]
     Active Substance: SARGRAMOSTIM
  10. MELATONIN [Concomitant]
     Active Substance: MELATONIN
  11. Sea Iodine [Concomitant]
  12. VITAMIN D3 [Concomitant]
     Active Substance: CHOLECALCIFEROL
  13. HOMEOPATHICS [Concomitant]
     Active Substance: HOMEOPATHICS
  14. FERROUS SULFATE [Concomitant]
     Active Substance: FERROUS SULFATE
  15. EGGPLANT [Concomitant]
     Active Substance: EGGPLANT
  16. ESSIAC [Concomitant]
  17. IP-6 Gold [Concomitant]
  18. MORPHINE [Concomitant]
     Active Substance: MORPHINE
  19. Now Brand Bone strength [Concomitant]
  20. Noxylane [Concomitant]
  21. SELENIUM [Concomitant]
     Active Substance: SELENIUM
  22. HERBALS\TURMERIC [Concomitant]
     Active Substance: HERBALS\TURMERIC
  23. VITAMIN B12 [Concomitant]
     Active Substance: CYANOCOBALAMIN
  24. VITAMIN C [Concomitant]
     Active Substance: ASCORBIC ACID
  25. ZINC GLUCONATE [Concomitant]
     Active Substance: ZINC GLUCONATE
  26. ZOLOFT [Concomitant]
     Active Substance: SERTRALINE HYDROCHLORIDE
  27. VITAMINS [Concomitant]
     Active Substance: VITAMINS
  28. Max3 IP6 [Concomitant]
  29. IRON [Concomitant]
     Active Substance: IRON

REACTIONS (9)
  - Fatigue [Unknown]
  - Headache [Unknown]
  - Appetite disorder [Unknown]
  - Back pain [Unknown]
  - Off label use [Unknown]
  - Joint swelling [Unknown]
  - Pain [Unknown]
  - Pneumonia [Unknown]
  - Pain [Unknown]

NARRATIVE: CASE EVENT DATE: 20220111
